FAERS Safety Report 7536670-9 (Version None)
Quarter: 2011Q2

REPORT INFORMATION
  Report Type: 
  Country: None (occurrence: None)
  Receive Date: 20110609
  Receipt Date: 20110125
  Transmission Date: 20111010
  Serious: Yes (Hospitalization)
  Sender: FDA-Public Use
  Company Number: A0910447A

PATIENT
  Age: 49 Year
  Sex: Male

DRUGS (1)
  1. ROSIGLITAZONE MALEATE [Suspect]
     Indication: DIABETES MELLITUS
     Route: 048

REACTIONS (6)
  - DRY EYE [None]
  - DYSPHAGIA [None]
  - AMNESIA [None]
  - EYE DISORDER [None]
  - PARALYSIS [None]
  - CEREBROVASCULAR ACCIDENT [None]
